FAERS Safety Report 10395100 (Version 1)
Quarter: 2014Q1

REPORT INFORMATION
  Report Type: Spontaneous
  Country: US (occurrence: None)
  Receive Date: 20130409
  Receipt Date: 20130409
  Transmission Date: 20141002
  Serious: No
  Sender: FDA-Public Use
  Company Number: 2013US-004590

PATIENT
  Age: 52 Year
  Sex: Female
  Weight: 47.8 kg

DRUGS (9)
  1. OMONTYS (PEGINESATIDE) SOLUTION FOR INJECTION [Suspect]
     Indication: NEPHROGENIC ANAEMIA
     Route: 042
     Dates: start: 20130211, end: 20130211
  2. EPOGEN (EPOETIN ALFA) [Concomitant]
  3. B COMPLEX (NICOTINAMIDE, PYRIDOXINE HYDROCHLORIDE, RIBOFLAVIN, THIAMINE HYDROCHLORIDE) [Concomitant]
  4. CO Q10 (UBIDECARENONE) [Concomitant]
  5. OMEGA 3 FISH OIL (FISH OIL) [Concomitant]
  6. KAYEXALATE (SODIUM POLYSTYRENE SULFONATE) [Concomitant]
  7. LISINOPRIL [Concomitant]
  8. ASPIRIN (ACETYLSALICYLIC ACID) [Concomitant]
  9. AMLODIPINE BESYLATE [Concomitant]

REACTIONS (6)
  - Drug hypersensitivity [None]
  - Urticaria [None]
  - Pruritus [None]
  - Dizziness [None]
  - Tachycardia [None]
  - Feeling hot [None]
